FAERS Safety Report 7269903-7 (Version None)
Quarter: 2011Q1

REPORT INFORMATION
  Report Type: 
  Country: None (occurrence: None)
  Receive Date: 20110202
  Receipt Date: 20110126
  Transmission Date: 20110831
  Serious: Yes (Other)
  Sender: FDA-Public Use
  Company Number: GB-ROCHE-746968

PATIENT
  Sex: Female
  Weight: 76.3 kg

DRUGS (2)
  1. ROACTEMRA [Suspect]
     Route: 042
     Dates: start: 20100727, end: 20101019
  2. METHOTREXATE [Concomitant]
     Route: 058

REACTIONS (1)
  - PSORIASIS [None]
